FAERS Safety Report 5736057-5 (Version None)
Quarter: 2008Q2

REPORT INFORMATION
  Report Type: 
  Country: None (occurrence: None)
  Receive Date: 20080513
  Receipt Date: 20080507
  Transmission Date: 20081010
  Serious: Yes (Hospitalization)
  Sender: FDA-Public Use
  Company Number: ES-ROCHE-367317

PATIENT
  Sex: Female
  Weight: 70 kg

DRUGS (9)
  1. DACLIZUMAB [Suspect]
     Dosage: DOSAGE FORM: VIALS
     Route: 042
  2. DACLIZUMAB [Suspect]
     Route: 042
     Dates: start: 20040304, end: 20040429
  3. MYCOPHENOLATE MOFETIL [Suspect]
     Route: 048
     Dates: start: 20040304
  4. TACROLIMUS [Suspect]
     Route: 048
     Dates: start: 20040415
  5. PREDNISONE TAB [Suspect]
     Route: 048
     Dates: start: 20040304
  6. PREDNISONE TAB [Suspect]
     Route: 048
     Dates: start: 20040325
  7. RANITIDINA [Concomitant]
     Route: 048
     Dates: start: 20040304
  8. AMLODIPINO [Concomitant]
     Route: 048
     Dates: start: 20040504
  9. GANCICLOVIR [Concomitant]
     Dates: start: 20040504

REACTIONS (2)
  - CYTOMEGALOVIRUS INFECTION [None]
  - DEEP VEIN THROMBOSIS [None]
